FAERS Safety Report 9289216 (Version 2)
Quarter: 2013Q2

REPORT INFORMATION
  Report Type: Spontaneous
  Country: GB (occurrence: GB)
  Receive Date: 20130514
  Receipt Date: 20130612
  Transmission Date: 20140414
  Serious: Yes (Hospitalization)
  Sender: FDA-Public Use
  Company Number: PHHY2013GB045957

PATIENT
  Age: 55 Year
  Sex: Male

DRUGS (3)
  1. DICLOFENAC [Suspect]
     Dosage: 238 DF, TABLETS
  2. PARACETAMOL [Suspect]
     Dosage: 48 DF, TABLETS
  3. DIHYDROCODEINE [Suspect]
     Dosage: 80 DF,

REACTIONS (13)
  - Large intestine perforation [Recovered/Resolved]
  - Abdominal tenderness [Recovered/Resolved]
  - Abdominal pain [Recovered/Resolved]
  - Abdominal rigidity [Recovered/Resolved]
  - Melaena [Recovered/Resolved]
  - Erosive duodenitis [Recovered/Resolved]
  - Large intestinal ulcer [Recovered/Resolved]
  - Oesophagitis [Recovered/Resolved]
  - Haemoglobin decreased [Recovered/Resolved]
  - Inflammation [Recovered/Resolved]
  - Platelet function test abnormal [Unknown]
  - Pneumoperitoneum [Unknown]
  - Intentional overdose [Recovered/Resolved]
